FAERS Safety Report 5366332-8 (Version None)
Quarter: 2007Q2

REPORT INFORMATION
  Report Type: 
  Country: None (occurrence: None)
  Receive Date: 20070620
  Receipt Date: 20070620
  Transmission Date: 20071010
  Serious: Yes (Other)
  Sender: FDA-Public Use
  Company Number: None

PATIENT
  Age: 56 Year
  Sex: Female
  Weight: 58.9676 kg

DRUGS (1)
  1. DERMAPLAST POISON IVY MEDTECH PRODUCTS [Suspect]
     Indication: EXPOSURE TO TOXIC AGENT
     Dosage: NOT MORE THAN 4 TIMES A DAY
     Dates: start: 20070516, end: 20070517

REACTIONS (4)
  - DRUG ADMINISTRATION ERROR [None]
  - INAPPROPRIATE SCHEDULE OF DRUG ADMINISTRATION [None]
  - PYREXIA [None]
  - SKIN BURNING SENSATION [None]
